FAERS Safety Report 17185519 (Version 1)
Quarter: 2019Q4

REPORT INFORMATION
  Report Type: Spontaneous
  Country: US (occurrence: US)
  Receive Date: 20191220
  Receipt Date: 20191220
  Transmission Date: 20200122
  Serious: No
  Sender: FDA-Public Use
  Company Number: US-MALLINCKRODT-T201906406

PATIENT
  Sex: Male

DRUGS (3)
  1. FENTANYL CITRATE. [Suspect]
     Active Substance: FENTANYL CITRATE
     Indication: PAIN
     Dosage: 400 MICROGRAM, Q4H, AS NEEDED
     Route: 065
  2. FENTANYL TRANSDERMAL SYSTEM [Suspect]
     Active Substance: FENTANYL
     Indication: PAIN
     Dosage: 150 MCG/HR, CHANGED EVERY 3 DAYS
     Route: 062
  3. FENTANYL TRANSDERMAL SYSTEM [Suspect]
     Active Substance: FENTANYL
     Indication: PAIN
     Dosage: 150 MCG/HR, CHANGED EVERY 3 DAYS
     Route: 062

REACTIONS (4)
  - Teeth brittle [Unknown]
  - Dry mouth [Unknown]
  - Dental caries [Unknown]
  - Fatigue [Unknown]
